FAERS Safety Report 23904857 (Version 1)
Quarter: 2024Q2

REPORT INFORMATION
  Report Type: Spontaneous
  Country: US (occurrence: US)
  Receive Date: 20240527
  Receipt Date: 20240527
  Transmission Date: 20240716
  Serious: Yes (Other)
  Sender: FDA-Public Use
  Company Number: US-BRISTOL-MYERS SQUIBB COMPANY-2024-079109

PATIENT
  Age: 84 Year
  Sex: Female

DRUGS (5)
  1. IPILIMUMAB [Suspect]
     Active Substance: IPILIMUMAB
     Indication: Hepatic angiosarcoma
     Dosage: 6 CYCLES
  2. NIVOLUMAB [Suspect]
     Active Substance: NIVOLUMAB
     Indication: Hepatic angiosarcoma
     Dosage: 6 CYCLES
  3. NIVOLUMAB [Suspect]
     Active Substance: NIVOLUMAB
     Dosage: 9 CYCLES OF MAINTENANCE NIVOLUMAB
  4. PACLITAXEL [Concomitant]
     Active Substance: PACLITAXEL
     Indication: Hepatic angiosarcoma
  5. PAZOPANIB [Concomitant]
     Active Substance: PAZOPANIB
     Indication: Hepatic angiosarcoma

REACTIONS (2)
  - Immune-mediated lung disease [Unknown]
  - Off label use [Unknown]
